FAERS Safety Report 5274253-4 (Version None)
Quarter: 2007Q1

REPORT INFORMATION
  Report Type: 
  Country: None (occurrence: None)
  Receive Date: 20070323
  Receipt Date: 20070316
  Transmission Date: 20070707
  Serious: Yes (Hospitalization)
  Sender: FDA-Public Use
  Company Number: IN-JNJFOC-20070303693

PATIENT
  Age: 50 Year
  Sex: Male

DRUGS (6)
  1. ACETAMINOPHEN [Suspect]
  2. ACETAMINOPHEN [Suspect]
     Indication: DRUG USE FOR UNKNOWN INDICATION
  3. FLUCLOXACILLIN [Suspect]
     Indication: DRUG USE FOR UNKNOWN INDICATION
  4. PHENYTOIN [Concomitant]
     Indication: DRUG USE FOR UNKNOWN INDICATION
  5. PHENOBARBITONE [Concomitant]
     Indication: DRUG USE FOR UNKNOWN INDICATION
  6. CARBAMAZEPINE [Concomitant]
     Indication: DRUG USE FOR UNKNOWN INDICATION

REACTIONS (2)
  - METABOLIC ACIDOSIS [None]
  - PYROGLUTAMATE INCREASED [None]
